FAERS Safety Report 5415556-X (Version None)
Quarter: 2007Q3

REPORT INFORMATION
  Report Type: 
  Country: None (occurrence: None)
  Receive Date: 20070815
  Receipt Date: 20070814
  Transmission Date: 20080115
  Serious: Yes (Hospitalization)
  Sender: FDA-Public Use
  Company Number: B0483283A

PATIENT
  Age: 23 Month
  Sex: Male
  Weight: 13 kg

DRUGS (2)
  1. AMOXICILLIN [Suspect]
     Route: 065
  2. LAROXYL [Suspect]
     Dosage: 160MG SINGLE DOSE
     Route: 048
     Dates: start: 20050818, end: 20050818

REACTIONS (1)
  - MEDICATION ERROR [None]
